FAERS Safety Report 25278038 (Version 2)
Quarter: 2025Q3

REPORT INFORMATION
  Report Type: Report from Study
  Country: KR (occurrence: KR)
  Receive Date: 20250507
  Receipt Date: 20250702
  Transmission Date: 20251020
  Serious: Yes (Hospitalization)
  Sender: AMGEN
  Company Number: KR-AMGEN-KORNI2025086740

PATIENT
  Age: 68 Year
  Sex: Male
  Weight: 54.5 kg

DRUGS (14)
  1. TARLATAMAB [Suspect]
     Active Substance: TARLATAMAB
     Indication: Small cell lung cancer
     Dosage: 1 MILLIGRAM, Q2WK/ C1D1
     Route: 040
     Dates: start: 20250425, end: 20250425
  2. TARLATAMAB [Suspect]
     Active Substance: TARLATAMAB
     Route: 040
     Dates: start: 20250507
  3. TARLATAMAB [Suspect]
     Active Substance: TARLATAMAB
     Route: 040
     Dates: start: 20250525
  4. Livaro [Concomitant]
     Dosage: 2 MILLIGRAM, QD
     Route: 048
  5. PANTOPRAZOLE SODIUM [Concomitant]
     Active Substance: PANTOPRAZOLE SODIUM
     Dosage: 40 MILLIGRAM, QD
     Route: 048
  6. Levira [Concomitant]
     Dosage: 500 MILLIGRAM, BID
  7. ACTIFED (PSEUDOEPHEDRINE HYDROCHLORIDE\TRIPROLIDINE HYDROCHLORIDE) [Concomitant]
     Active Substance: PSEUDOEPHEDRINE HYDROCHLORIDE\TRIPROLIDINE HYDROCHLORIDE
     Dosage: 1 DOSAGE FORM, BID
  8. Tacenol [Concomitant]
     Dosage: 650 MILLIGRAM, BID (PRN)
  9. Lopmin [Concomitant]
     Dosage: 2 MILLIGRAM, QD (PRN)
  10. MIRABEGRON [Concomitant]
     Active Substance: MIRABEGRON
     Dosage: 50 MILLIGRAM, QD
  11. Uremin [Concomitant]
     Dosage: 0.1 MILLIGRAM, QD/ HS
  12. Tams [Concomitant]
     Dosage: 0.2 MILLIGRAM, QD
     Route: 048
  13. LINAGLIPTIN [Concomitant]
     Active Substance: LINAGLIPTIN
     Dosage: 5 MILLIGRAM, QD
     Route: 048
  14. METFORMIN HYDROCHLORIDE [Concomitant]
     Active Substance: METFORMIN HYDROCHLORIDE
     Dosage: 1000 MILLIGRAM, QD

REACTIONS (1)
  - Immune effector cell-associated neurotoxicity syndrome [Recovered/Resolved]

NARRATIVE: CASE EVENT DATE: 20250427
